FAERS Safety Report 8915893 (Version 2)
Quarter: 2014Q1

REPORT INFORMATION
  Report Type: Report from Study
  Country: SE (occurrence: SE)
  Receive Date: 20121119
  Receipt Date: 20140324
  Transmission Date: 20141002
  Serious: Yes (Hospitalization, Other)
  Sender: FDA-Public Use
  Company Number: SE-PFIZER INC-2012284859

PATIENT
  Age: 67 Year
  Sex: Male
  Weight: 93.7 kg

DRUGS (17)
  1. GENOTROPIN [Suspect]
     Dosage: 0.2 MG, 1X/DAY,7 INJECTIONS/WEEK
     Route: 058
     Dates: start: 19981215
  2. LASIX RETARD [Concomitant]
     Indication: OEDEMA
     Dosage: UNK
     Dates: start: 19940622
  3. HYDROCORTISONE [Concomitant]
     Indication: BLOOD CORTICOTROPHIN DECREASED
     Dosage: UNK
     Dates: start: 20030625
  4. LAMOTRIGINE [Concomitant]
     Indication: CONVULSION
     Dosage: UNK
     Dates: start: 20041026
  5. LAMOTRIGINE [Concomitant]
     Indication: EPILEPSY
  6. ATENOLOL [Concomitant]
     Indication: ESSENTIAL HYPERTENSION
     Dosage: UNK
     Dates: start: 19860101
  7. TESTOSTERONE [Concomitant]
     Indication: LUTEINISING HORMONE DEFICIENCY
     Dosage: UNK
     Dates: start: 19900601
  8. TESTOSTERONE [Concomitant]
     Indication: FOLLICLE-STIMULATING HORMONE DEFICIENCY
  9. TESTOSTERONE [Concomitant]
     Indication: HYPOGONADISM MALE
  10. LASIX [Concomitant]
     Indication: ESSENTIAL HYPERTENSION
     Dosage: UNK
     Dates: start: 19940801
  11. TENORMIN [Concomitant]
     Indication: ESSENTIAL HYPERTENSION
     Dosage: UNK
     Dates: start: 19960819
  12. LACTULOSE [Concomitant]
     Indication: CONSTIPATION
     Dosage: UNK
     Dates: start: 20020401
  13. ZOLPIDEM [Concomitant]
     Indication: SLEEP DISORDER
     Dosage: UNK
     Dates: start: 20021125
  14. DESMOPRESSIN [Concomitant]
     Indication: BLOOD ANTIDIURETIC HORMONE DECREASED
     Dosage: UNK
     Dates: start: 19900601
  15. LEVOTHYROXINE [Concomitant]
     Indication: THYROID DISORDER
     Dosage: UNK
     Dates: start: 19900601
  16. LEVOTHYROXINE [Concomitant]
     Indication: PRIMARY HYPOTHYROIDISM
  17. SIMVASTATIN [Concomitant]
     Dosage: UNK
     Dates: start: 2007

REACTIONS (1)
  - Cerebrovascular accident [Unknown]
